FAERS Safety Report 9888428 (Version 1)
Quarter: 2014Q1

REPORT INFORMATION
  Report Type: Spontaneous
  Country: US (occurrence: US)
  Receive Date: 20140211
  Receipt Date: 20140211
  Transmission Date: 20141002
  Serious: No
  Sender: FDA-Public Use
  Company Number: US-009507513-1402USA001169

PATIENT
  Age: 48 Year
  Sex: Male

DRUGS (1)
  1. PEGINTRON [Suspect]
     Dosage: REDIPEN, ONCE WEEKLY INJECTION
     Dates: start: 20140117

REACTIONS (3)
  - Wrong technique in drug usage process [Unknown]
  - Product outer packaging issue [Unknown]
  - No adverse event [Unknown]
